FAERS Safety Report 5367365-8 (Version None)
Quarter: 2007Q2

REPORT INFORMATION
  Report Type: 
  Country: None (occurrence: None)
  Receive Date: 20070622
  Receipt Date: 20060619
  Transmission Date: 20071010
  Serious: No
  Sender: FDA-Public Use
  Company Number: US-ASTRAZENECA-2006UW13046

PATIENT
  Age: 68 Year
  Sex: Female
  Weight: 81.6 kg

DRUGS (7)
  1. PULMICORT [Suspect]
     Indication: ASTHMA
     Dosage: 4 PUFFS TWICE A DAY FOR ABOUT 3-5 YEARS / HAD TO GO OFF COLD TURKEY (OFF FOR TWO WEEKS
     Route: 055
     Dates: start: 20010101, end: 20060601
  2. PREDNISONE TAB [Concomitant]
     Route: 048
  3. SEREVENT [Concomitant]
  4. SINGULAIR [Concomitant]
  5. ALBUTEROL [Concomitant]
  6. IPRATROPIUM BROMIDE [Concomitant]
  7. GLYBURIDE [Concomitant]

REACTIONS (5)
  - ASTHENIA [None]
  - CHEST DISCOMFORT [None]
  - DYSPNOEA [None]
  - OXYGEN SATURATION DECREASED [None]
  - PEAK EXPIRATORY FLOW RATE DECREASED [None]
